FAERS Safety Report 12381734 (Version 1)
Quarter: 2016Q2

REPORT INFORMATION
  Report Type: Spontaneous
  Country: US (occurrence: None)
  Receive Date: 20160517
  Receipt Date: 20160517
  Transmission Date: 20160815
  Serious: No
  Sender: FDA-Public Use
  Company Number: None

PATIENT
  Age: 52 Year
  Sex: Female

DRUGS (1)
  1. XALKORI [Suspect]
     Active Substance: CRIZOTINIB
     Indication: PLASMA CELL MYELOMA
     Route: 048
     Dates: start: 20140626

REACTIONS (1)
  - Dyspnoea [None]

NARRATIVE: CASE EVENT DATE: 2016
